FAERS Safety Report 6675271-1 (Version None)
Quarter: 2010Q2

REPORT INFORMATION
  Report Type: 
  Country: None (occurrence: None)
  Receive Date: 20100409
  Receipt Date: 20100106
  Transmission Date: 20101027
  Serious: No
  Sender: FDA-Public Use
  Company Number: A0836737A

PATIENT
  Age: 34 Year
  Sex: Female

DRUGS (7)
  1. TYKERB [Suspect]
     Indication: BREAST CANCER
     Dosage: 250MG FIVE TIMES PER DAY
     Route: 048
     Dates: start: 20091217
  2. HERCEPTIN [Concomitant]
  3. DOXYCYCLINE [Concomitant]
  4. PROZAC [Concomitant]
  5. MELATONIN [Concomitant]
  6. FLEXERIL [Concomitant]
  7. MUCINEX [Concomitant]

REACTIONS (11)
  - ABDOMINAL PAIN [None]
  - ACNE [None]
  - DIARRHOEA [None]
  - DRY SKIN [None]
  - DYSPEPSIA [None]
  - MUSCLE SPASMS [None]
  - ORAL DISCOMFORT [None]
  - ORAL PAIN [None]
  - PRURITUS [None]
  - RASH [None]
  - STOMATITIS [None]
